FAERS Safety Report 12933650 (Version 2)
Quarter: 2016Q4

REPORT INFORMATION
  Report Type: Spontaneous
  Country: AT (occurrence: AT)
  Receive Date: 20161111
  Receipt Date: 20161227
  Transmission Date: 20170207
  Serious: Yes (Hospitalization, Other)
  Sender: FDA-Public Use
  Company Number: AT-BAYER-2016-214474

PATIENT
  Age: 0 Year
  Sex: Female
  Weight: 1.7 kg

DRUGS (2)
  1. MIRENA [Suspect]
     Active Substance: LEVONORGESTREL
  2. MIRENA [Suspect]
     Active Substance: LEVONORGESTREL
     Dosage: UNK
     Route: 064

REACTIONS (4)
  - Foetal growth restriction [None]
  - Foetal exposure timing unspecified [None]
  - Premature baby [None]
  - Low birth weight baby [None]

NARRATIVE: CASE EVENT DATE: 20160708
